FAERS Safety Report 10056629 (Version 1)
Quarter: 2014Q2

REPORT INFORMATION
  Report Type: Spontaneous
  Country: US (occurrence: US)
  Receive Date: 20140403
  Receipt Date: 20140403
  Transmission Date: 20141212
  Serious: Yes (Hospitalization)
  Sender: FDA-Public Use
  Company Number: US-BAYER-2014-049146

PATIENT
  Age: 44 Year
  Sex: Female
  Weight: 81.18 kg

DRUGS (8)
  1. YAZ [Suspect]
  2. ALBUTEROL [Concomitant]
     Dosage: 18 ?G, 2 PUFFS
     Route: 048
     Dates: start: 20080306
  3. FLUTICASONE [Concomitant]
     Dosage: 250 MG, BID
     Dates: start: 20080306
  4. MONTELUKAST [Concomitant]
     Indication: DYSPNOEA
     Dosage: 10 MG, QD
     Dates: start: 20080306
  5. OMEPRAZOLE [Concomitant]
     Indication: GASTRIC DISORDER
     Dosage: 20 MG, QD
     Route: 048
     Dates: start: 20080306
  6. ROCEPHIN [Concomitant]
  7. KEFLEX [Concomitant]
  8. FERROUS GLUCONATE [Concomitant]

REACTIONS (3)
  - Deep vein thrombosis [Recovered/Resolved]
  - Deep vein thrombosis [Recovered/Resolved]
  - Thrombophlebitis superficial [None]
